FAERS Safety Report 4884725-X (Version None)
Quarter: 2006Q1

REPORT INFORMATION
  Report Type: 
  Country: None (occurrence: None)
  Receive Date: 20060119
  Receipt Date: 20060112
  Transmission Date: 20060701
  Serious: Yes (Other)
  Sender: FDA-Public Use
  Company Number: US-JNJFOC-20051205537

PATIENT
  Sex: Male
  Weight: 152.86 kg

DRUGS (17)
  1. REMICADE [Suspect]
     Route: 042
  2. REMICADE [Suspect]
     Indication: CROHN'S DISEASE
     Route: 042
  3. IMURAN [Suspect]
     Indication: DRUG USE FOR UNKNOWN INDICATION
     Dates: end: 20040915
  4. ATARAX [Concomitant]
  5. FLEXERIL [Concomitant]
  6. AMBIEN [Concomitant]
  7. ASACOL [Concomitant]
  8. PREDNISONE [Concomitant]
  9. PROTONIX [Concomitant]
  10. PERCOCET [Concomitant]
  11. PERCOCET [Concomitant]
  12. IMODIUM [Concomitant]
  13. VICODIN [Concomitant]
  14. VICODIN [Concomitant]
  15. CELEBREX [Concomitant]
  16. COUMADIN [Concomitant]
  17. AVANDAMENT [Concomitant]

REACTIONS (2)
  - ANAPLASTIC LARGE CELL LYMPHOMA T- AND NULL-CELL TYPES [None]
  - PANCYTOPENIA [None]
